FAERS Safety Report 17309842 (Version 1)
Quarter: 2020Q1

REPORT INFORMATION
  Report Type: Report from Study
  Country: CO (occurrence: CO)
  Receive Date: 20200123
  Receipt Date: 20200123
  Transmission Date: 20200409
  Serious: Yes (Death, Hospitalization, Other)
  Sender: FDA-Public Use
  Company Number: CO-JNJFOC-20191132377

PATIENT
  Age: 69 Year
  Sex: Male
  Weight: 66 kg

DRUGS (2)
  1. STELARA [Suspect]
     Active Substance: USTEKINUMAB
     Indication: PSORIASIS
     Route: 058
     Dates: start: 20130515
  2. STELARA [Suspect]
     Active Substance: USTEKINUMAB
     Route: 058
     Dates: start: 20160705

REACTIONS (10)
  - Diabetes mellitus [Unknown]
  - Myocardial infarction [Fatal]
  - Pallor [Unknown]
  - Hypertension [Unknown]
  - Psoriasis [Unknown]
  - Product dose omission [Unknown]
  - Cough [Unknown]
  - Inflammation [Unknown]
  - Haematochezia [Unknown]
  - Liver disorder [Unknown]

NARRATIVE: CASE EVENT DATE: 201607
